FAERS Safety Report 8793025 (Version 1)
Quarter: 2012Q4

REPORT INFORMATION
  Report Type: 
  Country: US (occurrence: US)
  Receive Date: 20120918
  Receipt Date: 20120918
  Transmission Date: 20130627
  Serious: Yes (Life-Threatening, Other)
  Sender: FDA-Public Use
  Company Number: US-BAYER-2012-096141

PATIENT
  Age: 81 Year
  Sex: Female
  Weight: 63.49 kg

DRUGS (15)
  1. ACETYLSALICYLIC ACID({=100 MG) [Suspect]
     Indication: THROMBOSIS PROPHYLAXIS
     Dosage: 81 mg, QD
     Route: 048
  2. BUSPIRONE [Concomitant]
     Dosage: tapered off prior to initiation of ECT
  3. MIRTAZAPINE [Concomitant]
     Dosage: tapered off prior to initiation of ECT
  4. BUPROPION [Concomitant]
     Dosage: tapered off prior to initiation of ECT
  5. ZOLPIDEM [Concomitant]
     Dosage: tapered off prior to initiation of ECT
  6. NORTRIPTYLINE [Concomitant]
     Dosage: tapered off prior to initiation of ECT
  7. LORAZEPAM [Concomitant]
     Dosage: tapered off prior to initiation of ECT
  8. PANTOPRAZOLE [Concomitant]
     Dosage: tapered off prior to initiation of ECT
  9. LUBIPROSTONE [Concomitant]
     Dosage: tapered off prior to initiation of ECT
  10. AMLODIPINE [Concomitant]
     Dosage: tapered off prior to initiation of ECT
  11. ROSUVASTATIN [Concomitant]
     Dosage: tapered off prior to initiation of ECT
  12. METHOHEXITAL [Concomitant]
     Indication: GENERAL ANAESTHESIA
     Dosage: 100 mg, UNK
     Route: 042
  13. METHOHEXITAL [Concomitant]
     Indication: ELECTROCONVULSIVE THERAPY
  14. SUCCINYLCHOLINE CHLORIDE [Concomitant]
     Indication: NEUROMUSCULAR BLOCKADE
     Dosage: 80 mg, UNK
     Route: 042
  15. SUCCINYLCHOLINE CHLORIDE [Concomitant]
     Indication: ELECTROCONVULSIVE THERAPY

REACTIONS (4)
  - Deep vein thrombosis [Recovering/Resolving]
  - Pulmonary embolism [Recovering/Resolving]
  - Pulseless electrical activity [Recovered/Resolved]
  - Pulmonary infarction [Unknown]
